FAERS Safety Report 6633321-2 (Version None)
Quarter: 2010Q1

REPORT INFORMATION
  Report Type: 
  Country: None (occurrence: None)
  Receive Date: 20100312
  Receipt Date: 20100302
  Transmission Date: 20100710
  Serious: Yes (Death, Other)
  Sender: FDA-Public Use
  Company Number: PL-PFIZER INC-2010027323

PATIENT
  Age: 30 Year
  Sex: Male

DRUGS (2)
  1. LYRICA [Suspect]
     Dosage: 75 MG, 1X/DAY
     Dates: start: 20091101
  2. DURAGESIC-100 [Concomitant]
     Dosage: UNK
     Dates: start: 20091001, end: 20100101

REACTIONS (2)
  - DIARRHOEA HAEMORRHAGIC [None]
  - MALIGNANT NEOPLASM PROGRESSION [None]
